FAERS Safety Report 23947016 (Version 3)
Quarter: 2024Q3

REPORT INFORMATION
  Report Type: Spontaneous
  Country: US (occurrence: US)
  Receive Date: 20240606
  Receipt Date: 20240926
  Transmission Date: 20241017
  Serious: Yes (Hospitalization, Other)
  Sender: BIOVITRUM
  Company Number: US-BIOVITRUM-2024-US-008094

PATIENT
  Age: 63 Year
  Sex: Male

DRUGS (2)
  1. VONJO [Suspect]
     Active Substance: PACRITINIB
     Indication: Plasma cell myeloma
     Dosage: TWICE DAILY
     Route: 048
     Dates: start: 20230306
  2. VONJO [Suspect]
     Active Substance: PACRITINIB
     Dosage: TWICE DAILY
     Route: 048
     Dates: start: 20230306

REACTIONS (10)
  - Nausea [Recovered/Resolved]
  - Fatigue [Not Recovered/Not Resolved]
  - Full blood count decreased [Unknown]
  - Intentional product misuse [Not Recovered/Not Resolved]
  - Nail bed bleeding [Unknown]
  - Laboratory test abnormal [Unknown]
  - Pneumonia [Unknown]
  - Product dose omission issue [Unknown]
  - Myelofibrosis [Unknown]
  - Hypertension [Unknown]
